FAERS Safety Report 8619000-0 (Version None)
Quarter: 2012Q3

REPORT INFORMATION
  Report Type: 
  Country: None (occurrence: None)
  Receive Date: 20120824
  Receipt Date: 20120820
  Transmission Date: 20120928
  Serious: Yes (Other)
  Sender: FDA-Public Use
  Company Number: PHHY2011CA73433

PATIENT
  Sex: Male

DRUGS (3)
  1. SANDOSTATIN LAR [Suspect]
     Indication: NEUROENDOCRINE TUMOUR
     Dosage: 30 MG, EVERY 4 WEEKS
     Route: 030
     Dates: start: 20110810
  2. SANDOSTATIN LAR [Suspect]
     Dosage: 60 MG, QMO
     Route: 030
  3. SANDOSTATIN LAR [Suspect]
     Dosage: 60 MG, EVERY 4 WEEKS
     Route: 030

REACTIONS (15)
  - BLOOD PRESSURE SYSTOLIC INCREASED [None]
  - DIARRHOEA [None]
  - HEPATIC LESION [None]
  - DYSPNOEA [None]
  - HAEMOGLOBIN DECREASED [None]
  - STRESS URINARY INCONTINENCE [None]
  - TREMOR [None]
  - HAEMORRHAGE [None]
  - FAECES PALE [None]
  - ASTHENIA [None]
  - PULMONARY EMBOLISM [None]
  - BLOOD BLISTER [None]
  - HYPERHIDROSIS [None]
  - WEIGHT DECREASED [None]
  - ABDOMINAL PAIN LOWER [None]
